FAERS Safety Report 25780107 (Version 1)
Quarter: 2025Q3

REPORT INFORMATION
  Report Type: Spontaneous
  Country: EU (occurrence: EU)
  Receive Date: 20250909
  Receipt Date: 20250909
  Transmission Date: 20251020
  Serious: Yes (Disabling)
  Sender: MYLAN
  Company Number: None

PATIENT
  Age: 93 Year
  Sex: Male
  Weight: 75 kg

DRUGS (4)
  1. INSPRA [Suspect]
     Active Substance: EPLERENONE
     Indication: Product used for unknown indication
     Dosage: 50 MILLIGRAM, QD
     Dates: start: 2020, end: 20250816
  2. XARELTO [Concomitant]
     Active Substance: RIVAROXABAN
  3. AMIODARONE [Concomitant]
     Active Substance: AMIODARONE
  4. IMOVANE [Concomitant]
     Active Substance: ZOPICLONE

REACTIONS (1)
  - Peripheral artery thrombosis [Recovered/Resolved with Sequelae]

NARRATIVE: CASE EVENT DATE: 20250816
